FAERS Safety Report 10877708 (Version 1)
Quarter: 2015Q1

REPORT INFORMATION
  Report Type: Spontaneous
  Country: US (occurrence: None)
  Receive Date: 20150224
  Receipt Date: 20150224
  Transmission Date: 20150721
  Serious: Yes (Life-Threatening, Other)
  Sender: FDA-Public Use
  Company Number: None

PATIENT
  Age: 35 Year
  Sex: Female
  Weight: 88.45 kg

DRUGS (5)
  1. ZYRTEC-D [Concomitant]
     Active Substance: CETIRIZINE HYDROCHLORIDE\PSEUDOEPHEDRINE HYDROCHLORIDE
  2. DULOXETINE [Concomitant]
     Active Substance: DULOXETINE
  3. WELLBUTRIN [Concomitant]
     Active Substance: BUPROPION HYDROCHLORIDE
  4. SHAKEOLOGY [Concomitant]
  5. DULOXETINE [Suspect]
     Active Substance: DULOXETINE
     Indication: MAJOR DEPRESSION
     Dosage: 1 PILL ONCE DAILY
     Route: 048
     Dates: start: 20141101, end: 20150223

REACTIONS (6)
  - Pain [None]
  - Activities of daily living impaired [None]
  - Fatigue [None]
  - Asthenia [None]
  - Product substitution issue [None]
  - Impaired work ability [None]

NARRATIVE: CASE EVENT DATE: 20141118
